FAERS Safety Report 23408983 (Version 1)
Quarter: 2024Q1

REPORT INFORMATION
  Report Type: Spontaneous
  Country: US (occurrence: US)
  Receive Date: 20240117
  Receipt Date: 20240117
  Transmission Date: 20240410
  Serious: Yes (Other)
  Sender: FDA-Public Use
  Company Number: US-PERRIGO-24US000305

PATIENT
  Sex: Male

DRUGS (1)
  1. UNISOM SLEEPTABS [Suspect]
     Active Substance: DOXYLAMINE SUCCINATE
     Indication: Product used for unknown indication
     Dosage: 25 MG, SINGLE
     Route: 048
     Dates: start: 20240108, end: 20240108

REACTIONS (14)
  - Partial seizures [Unknown]
  - Loss of consciousness [Recovered/Resolved]
  - Fall [Recovered/Resolved]
  - Skin laceration [Unknown]
  - Blood glucose increased [Unknown]
  - Feeling abnormal [Unknown]
  - Dizziness [Unknown]
  - Confusional state [Unknown]
  - Nightmare [Unknown]
  - Feeling hot [Unknown]
  - Hyperhidrosis [Unknown]
  - Blood pressure increased [Unknown]
  - Insomnia [Unknown]
  - Dysstasia [Unknown]

NARRATIVE: CASE EVENT DATE: 20240108
